FAERS Safety Report 8226728-3 (Version None)
Quarter: 2012Q1

REPORT INFORMATION
  Report Type: 
  Country: None (occurrence: None)
  Receive Date: 20120322
  Receipt Date: 20120313
  Transmission Date: 20120608
  Serious: Yes (Hospitalization, Other)
  Sender: FDA-Public Use
  Company Number: US-BAYER-2011-067703

PATIENT
  Age: 20 Year
  Sex: Female
  Weight: 106.58 kg

DRUGS (7)
  1. PROMETHAZINE [Concomitant]
  2. ALLEGRA-D 12 HOUR [Concomitant]
  3. YAZ [Suspect]
     Dosage: UNK
     Dates: start: 20080601, end: 20091001
  4. AMOXICILLIN [Concomitant]
  5. HYDROCODONE BITARTRATE AND ACETAMINOPHEN [Concomitant]
  6. METHYLPREDNISOLONE [Concomitant]
  7. FLUCONAZOLE [Concomitant]

REACTIONS (4)
  - GALLBLADDER INJURY [None]
  - CHOLECYSTITIS [None]
  - PAIN [None]
  - CHOLELITHIASIS [None]
